FAERS Safety Report 25517108 (Version 1)
Quarter: 2025Q3

REPORT INFORMATION
  Report Type: Spontaneous
  Country: US (occurrence: US)
  Receive Date: 20250704
  Receipt Date: 20250704
  Transmission Date: 20251021
  Serious: No
  Sender: RADIUS PHARM
  Company Number: US-RADIUS HEALTH INC.-US-RADIUS-25046890

PATIENT
  Sex: Female

DRUGS (2)
  1. TYMLOS [Suspect]
     Active Substance: ABALOPARATIDE
     Indication: Product used for unknown indication
     Dosage: UNK UNK, QD (EVERY NIGHT)
     Route: 065
     Dates: start: 2025
  2. TYMLOS [Suspect]
     Active Substance: ABALOPARATIDE

REACTIONS (1)
  - Tooth disorder [Unknown]
